FAERS Safety Report 9158605 (Version 1)
Quarter: 2013Q1

REPORT INFORMATION
  Report Type: Spontaneous
  Country: JP (occurrence: JP)
  Receive Date: 20130312
  Receipt Date: 20130312
  Transmission Date: 20140127
  Serious: Yes (Other)
  Sender: FDA-Public Use
  Company Number: JP-PFIZER INC-2013080412

PATIENT
  Age: 65 Year
  Sex: Male

DRUGS (1)
  1. MIGLITOL [Suspect]
     Dosage: UNK
     Route: 048
     Dates: start: 201108, end: 201109

REACTIONS (1)
  - Drug-induced liver injury [Unknown]
